FAERS Safety Report 6133192-7 (Version None)
Quarter: 2009Q1

REPORT INFORMATION
  Report Type: 
  Country: None (occurrence: None)
  Receive Date: 20090325
  Receipt Date: 20090325
  Transmission Date: 20090719
  Serious: No
  Sender: FDA-Public Use
  Company Number: None

PATIENT
  Age: 56 Year
  Sex: Female
  Weight: 104.3273 kg

DRUGS (5)
  1. LEVAQUIN [Suspect]
     Indication: BRONCHITIS
     Dosage: 1 TABLET ONCE A DAY PO, 14 DATS
     Route: 048
     Dates: start: 20081125, end: 20081206
  2. LEVAQUIN [Suspect]
     Indication: PNEUMONIA
     Dosage: 1 TABLET ONCE A DAY PO, I STOPPED IT AFTER 5 DAY
     Route: 048
     Dates: start: 20090306, end: 20090311
  3. NAPROXEN [Concomitant]
  4. CORTIZONE SHOT [Concomitant]
  5. . [Concomitant]

REACTIONS (11)
  - ANXIETY [None]
  - APPARENT DEATH [None]
  - ARTHRALGIA [None]
  - ASTHENIA [None]
  - DYSPNOEA [None]
  - FATIGUE [None]
  - FEELING ABNORMAL [None]
  - GAIT DISTURBANCE [None]
  - INSOMNIA [None]
  - PAIN IN EXTREMITY [None]
  - WALKING AID USER [None]
